FAERS Safety Report 6252105-0 (Version None)
Quarter: 2009Q2

REPORT INFORMATION
  Report Type: 
  Country: None (occurrence: None)
  Receive Date: 20090630
  Receipt Date: 20050724
  Transmission Date: 20091009
  Serious: Yes (Death)
  Sender: FDA-Public Use
  Company Number: US-ROCHE-639052

PATIENT
  Sex: Male

DRUGS (7)
  1. ENFUVIRTIDE [Suspect]
     Route: 065
     Dates: start: 20041102, end: 20050704
  2. INVIRASE [Concomitant]
     Dates: start: 20030218, end: 20050704
  3. NORVIR [Concomitant]
     Dates: start: 20030218, end: 20050704
  4. TRIZIVIR [Concomitant]
     Dates: start: 20030218, end: 20050704
  5. VIREAD [Concomitant]
     Dosage: FREQUENCY REPORTED AS QD
     Dates: start: 20040218, end: 20050704
  6. ZIAGEN [Concomitant]
     Dosage: FREQUENCY REPORTED AS QD
     Dates: start: 20040614, end: 20050704
  7. EPZICOM [Concomitant]
     Dosage: FREQUENCY REPORTED AS QD
     Dates: start: 20041110, end: 20050704

REACTIONS (1)
  - ACQUIRED IMMUNODEFICIENCY SYNDROME [None]
